FAERS Safety Report 14695207 (Version 1)
Quarter: 2018Q1

REPORT INFORMATION
  Report Type: Spontaneous
  Country: PT (occurrence: PT)
  Receive Date: 20180329
  Receipt Date: 20180329
  Transmission Date: 20180509
  Serious: Yes (Other)
  Sender: FDA-Public Use
  Company Number: PT-ELI_LILLY_AND_COMPANY-PT201803012239

PATIENT

DRUGS (1)
  1. ERBITUX [Suspect]
     Active Substance: CETUXIMAB
     Indication: PRODUCT USED FOR UNKNOWN INDICATION
     Dosage: UNK, UNKNOWN
     Route: 065

REACTIONS (11)
  - Aphthous ulcer [Unknown]
  - Vomiting [Unknown]
  - Pain [Unknown]
  - Performance status decreased [Unknown]
  - Dermatitis acneiform [Unknown]
  - Osteoradionecrosis [Unknown]
  - Dysphagia [Unknown]
  - Radiation skin injury [Unknown]
  - Pyrexia [Unknown]
  - Radiation mucositis [Unknown]
  - Weight decreased [Unknown]

NARRATIVE: CASE EVENT DATE: 201606
